FAERS Safety Report 10662173 (Version 2)
Quarter: 2015Q1

REPORT INFORMATION
  Report Type: Report from Study
  Country: DE (occurrence: TR)
  Receive Date: 20141218
  Receipt Date: 20150105
  Transmission Date: 20150720
  Serious: Yes (Death, Hospitalization)
  Sender: FDA-Public Use
  Company Number: DE-ACTELION-A-US2014-109900

PATIENT
  Age: 65 Year
  Sex: Female

DRUGS (1)
  1. VENTAVIS [Suspect]
     Active Substance: ILOPROST
     Indication: PULMONARY HYPERTENSION
     Dosage: UNK, Q4HRS (6X1)
     Route: 055
     Dates: start: 20130626, end: 20141209

REACTIONS (5)
  - Respiratory failure [Fatal]
  - Dyspnoea [Unknown]
  - Myelofibrosis [Fatal]
  - Metabolic acidosis [Fatal]
  - Intracardiac thrombus [Unknown]

NARRATIVE: CASE EVENT DATE: 20141209
